FAERS Safety Report 9877122 (Version 1)
Quarter: 2014Q1

REPORT INFORMATION
  Report Type: Report from Study
  Country: CA (occurrence: CA)
  Receive Date: 20140206
  Receipt Date: 20140206
  Transmission Date: 20141002
  Serious: Yes (Other)
  Sender: FDA-Public Use
  Company Number: CA-JNJFOC-20140113010

PATIENT
  Age: 57 Year
  Sex: Female
  Weight: 67 kg

DRUGS (8)
  1. REMICADE [Suspect]
     Indication: CROHN^S DISEASE
     Route: 042
     Dates: start: 20140129
  2. REMICADE [Suspect]
     Indication: CROHN^S DISEASE
     Route: 042
     Dates: start: 20130425
  3. NORMAL SALINE [Concomitant]
     Indication: PREMEDICATION
     Dosage: 500 CUBIC CENTIMETER IV BOLUS
     Route: 042
  4. SOLU CORTEF [Concomitant]
     Indication: PREMEDICATION
     Route: 042
  5. FOSAMAX [Concomitant]
     Route: 065
  6. CALCIUM [Concomitant]
     Route: 065
  7. VITAMIN D [Concomitant]
     Route: 065
  8. PENTASA [Concomitant]
     Route: 065

REACTIONS (4)
  - Rectal haemorrhage [Not Recovered/Not Resolved]
  - Abdominal pain [Not Recovered/Not Resolved]
  - Frequent bowel movements [Not Recovered/Not Resolved]
  - Headache [Unknown]
